FAERS Safety Report 8418769-8 (Version None)
Quarter: 2012Q2

REPORT INFORMATION
  Report Type: 
  Country: None (occurrence: None)
  Receive Date: 20120607
  Receipt Date: 20120518
  Transmission Date: 20120825
  Serious: Yes (Life-Threatening)
  Sender: FDA-Public Use
  Company Number: US-ROCHE-1070383

PATIENT
  Sex: Female
  Weight: 172.97 kg

DRUGS (16)
  1. ASTELIN [Concomitant]
     Indication: RHINITIS ALLERGIC
     Route: 045
     Dates: start: 20020205
  2. BIAXIN (UNITED STATES) [Concomitant]
     Route: 048
     Dates: start: 20060405
  3. ALBUTEROL [Concomitant]
     Indication: ASTHMA
     Dates: start: 20040614
  4. SINGULAIR [Concomitant]
     Indication: RHINITIS ALLERGIC
     Route: 048
     Dates: start: 20030405
  5. SINGULAIR [Concomitant]
     Indication: ASTHMA
  6. RHINOCORT [Concomitant]
     Indication: RHINITIS ALLERGIC
     Route: 045
  7. HYDROXYZINE [Concomitant]
     Indication: URTICARIA CHRONIC
     Route: 048
  8. ALLEGRA [Concomitant]
     Indication: URTICARIA CHRONIC
     Route: 048
     Dates: start: 20040614
  9. XOLAIR [Suspect]
     Indication: ASTHMA
     Route: 058
     Dates: start: 20060322, end: 20060405
  10. ZYRTEC [Concomitant]
     Indication: RHINITIS ALLERGIC
     Route: 048
     Dates: start: 20060614
  11. HYDROXYZINE [Concomitant]
     Indication: ANGIOEDEMA
  12. ADVAIR DISKUS 100/50 [Concomitant]
     Indication: ASTHMA
     Route: 048
     Dates: start: 20030827
  13. RANITIDINE [Concomitant]
     Indication: URTICARIA CHRONIC
     Route: 048
  14. RANITIDINE [Concomitant]
     Indication: ANGIOEDEMA
  15. FLONASE [Concomitant]
     Indication: RHINITIS ALLERGIC
     Route: 045
     Dates: start: 20030827, end: 20030908
  16. FLOVENT [Concomitant]
     Indication: ASTHMA
     Route: 048
     Dates: start: 20031022

REACTIONS (1)
  - DYSPNOEA [None]
